FAERS Safety Report 9448952 (Version 1)
Quarter: 2013Q3

REPORT INFORMATION
  Report Type: Spontaneous
  Country: US (occurrence: US)
  Receive Date: 20130808
  Receipt Date: 20130808
  Transmission Date: 20140515
  Serious: Yes (Hospitalization, Other)
  Sender: FDA-Public Use
  Company Number: US-009507513-0705USA00815

PATIENT
  Sex: Female
  Weight: 64.41 kg

DRUGS (13)
  1. FOSAMAX [Suspect]
     Indication: OSTEOPOROSIS
     Dosage: 40 MG, QW
     Route: 048
     Dates: start: 20000821
  2. FOSAMAX [Suspect]
     Indication: OSTEOPENIA
     Dosage: 70 MG, QW
     Route: 048
     Dates: start: 200009, end: 200705
  3. FOSAMAX PLUS D [Suspect]
     Indication: OSTEOPOROSIS
     Dosage: 70 MG/2800
     Route: 048
     Dates: start: 200705
  4. FOSAMAX PLUS D [Suspect]
     Indication: OSTEOPENIA
  5. CENTRUM SILVER [Concomitant]
     Dosage: 1 DF, QD
  6. POSTURE D [Concomitant]
     Dosage: 1 DF, QD
  7. EVISTA [Concomitant]
     Indication: OSTEOPOROSIS
     Dosage: 60 MG, QD
     Dates: start: 2000
  8. ZANTAC [Concomitant]
     Dosage: 75 MG, QD
  9. GASTROINTESTINAL PREPARATIONS (UNSPECIFIED) [Concomitant]
     Dosage: 1 DF, QD
  10. KLONOPIN [Concomitant]
     Dosage: 1 MG, HS
  11. TRIAMCINOLONE ACETONIDE [Concomitant]
     Dosage: UNK UNK, PRN
  12. BISACODYL [Concomitant]
     Dosage: UNK UNK, PRN
  13. CLONAZEPAM [Concomitant]
     Indication: CONVULSION
     Dates: start: 199910

REACTIONS (11)
  - Uterine polyp [Unknown]
  - Osteonecrosis of jaw [Unknown]
  - Parathyroid tumour benign [Unknown]
  - Blood cholesterol increased [Unknown]
  - Exostosis of jaw [Unknown]
  - Exostosis of jaw [Unknown]
  - Hiatus hernia [Unknown]
  - Large intestine polyp [Unknown]
  - Melanosis coli [Unknown]
  - Colon adenoma [Unknown]
  - Constipation [Unknown]
